FAERS Safety Report 19508764 (Version 2)
Quarter: 2021Q3

REPORT INFORMATION
  Report Type: Report from Study
  Country: US (occurrence: US)
  Receive Date: 20210708
  Receipt Date: 20210831
  Transmission Date: 20211014
  Serious: Yes (Death, Hospitalization)
  Sender: FDA-Public Use
  Company Number: US-SEATTLE GENETICS-2021SGN03559

PATIENT
  Sex: Female

DRUGS (1)
  1. TUCATINIB [Suspect]
     Active Substance: TUCATINIB
     Indication: BREAST CANCER
     Dosage: UNK

REACTIONS (7)
  - Hydrocephalus [Unknown]
  - Chronic kidney disease [Unknown]
  - Endotracheal intubation [Unknown]
  - Intraventricular haemorrhage [Unknown]
  - Breast cancer metastatic [Fatal]
  - Metastases to meninges [Unknown]
  - Cerebrovascular accident [Unknown]
